FAERS Safety Report 11455763 (Version 3)
Quarter: 2015Q4

REPORT INFORMATION
  Report Type: Spontaneous
  Country: RU (occurrence: RU)
  Receive Date: 20150903
  Receipt Date: 20151109
  Transmission Date: 20160304
  Serious: Yes (Hospitalization, Other)
  Sender: FDA-Public Use
  Company Number: RU-BRISTOL-MYERS SQUIBB COMPANY-BMS-2015-057972

PATIENT
  Age: 60 Year
  Sex: Male

DRUGS (5)
  1. DIGOXIN. [Interacting]
     Active Substance: DIGOXIN
     Indication: TACHYARRHYTHMIA
     Route: 048
  2. RAMIPRIL. [Interacting]
     Active Substance: RAMIPRIL
     Indication: PRODUCT USED FOR UNKNOWN INDICATION
     Route: 048
  3. BETALOC                            /00376903/ [Concomitant]
     Indication: PRODUCT USED FOR UNKNOWN INDICATION
     Route: 065
  4. ELIQUIS [Suspect]
     Active Substance: APIXABAN
     Indication: CEREBROVASCULAR ACCIDENT PROPHYLAXIS
     Dosage: 5 MG, BID
     Route: 048
     Dates: start: 201505, end: 201508
  5. LIPRIMAR [Concomitant]
     Active Substance: ATORVASTATIN CALCIUM
     Indication: PRODUCT USED FOR UNKNOWN INDICATION
     Route: 048

REACTIONS (5)
  - Alanine aminotransferase increased [Recovering/Resolving]
  - Haematuria [Recovering/Resolving]
  - Aspartate aminotransferase increased [Recovering/Resolving]
  - Blood creatinine increased [Recovering/Resolving]
  - Drug interaction [Unknown]

NARRATIVE: CASE EVENT DATE: 201506
